FAERS Safety Report 11788294 (Version 1)
Quarter: 2015Q4

REPORT INFORMATION
  Report Type: Spontaneous
  Country: GB (occurrence: GB)
  Receive Date: 20151201
  Receipt Date: 20151201
  Transmission Date: 20160305
  Serious: Yes (Life-Threatening, Hospitalization, Other)
  Sender: FDA-Public Use
  Company Number: GB-JNJFOC-20151119872

PATIENT
  Age: 44 Year
  Sex: Male
  Weight: 81 kg

DRUGS (2)
  1. COCODAMOL [Concomitant]
     Active Substance: ACETAMINOPHEN\CODEINE PHOSPHATE
     Indication: PRODUCT USED FOR UNKNOWN INDICATION
     Dosage: 8/500MG. ONLY OCCASIONALLY
     Route: 065
  2. IBUPROFEN. [Suspect]
     Active Substance: IBUPROFEN
     Indication: BACK PAIN
     Dosage: DOSE: 200 (UNIT NOT REPORTED)??APPROXIMATELY
     Route: 065

REACTIONS (7)
  - Abnormal behaviour [Unknown]
  - Disorientation [Recovered/Resolved]
  - Hypokinesia [Unknown]
  - Dissociation [Recovered/Resolved]
  - Communication disorder [Unknown]
  - Aggression [Recovered/Resolved]
  - Confusional state [Recovered/Resolved]
